FAERS Safety Report 5321532-8 (Version None)
Quarter: 2007Q1

REPORT INFORMATION
  Report Type: 
  Country: None (occurrence: None)
  Receive Date: 20070220
  Receipt Date: 20061130
  Transmission Date: 20070707
  Serious: No
  Sender: FDA-Public Use
  Company Number: TPA2006A02164

PATIENT
  Age: 49 Year
  Sex: Male

DRUGS (5)
  1. ROZEREM [Suspect]
     Dosage: PER ORAL
     Route: 048
  2. CELEXA [Concomitant]
  3. LISINOPRIL [Concomitant]
  4. METFORMIN HCL [Concomitant]
  5. ZOCOR [Concomitant]

REACTIONS (1)
  - DRUG SCREEN POSITIVE [None]
